FAERS Safety Report 12255624 (Version 1)
Quarter: 2016Q2

REPORT INFORMATION
  Report Type: Spontaneous
  Country: US (occurrence: None)
  Receive Date: 20160411
  Receipt Date: 20160411
  Transmission Date: 20160815
  Serious: Yes (Other)
  Sender: FDA-Public Use
  Company Number: None

PATIENT
  Age: 61 Year
  Sex: Male
  Weight: 112.9 kg

DRUGS (2)
  1. VANCOMYCIN 1000 MG APP (63323-0284-20) [Suspect]
     Active Substance: VANCOMYCIN HYDROCHLORIDE
     Indication: OSTEOMYELITIS
     Dosage: 1250 MG Q12H IV (DL PICC)
     Route: 042
     Dates: start: 20160210, end: 20160213
  2. VANCOMYCIN 5000MG MYLAN [Suspect]
     Active Substance: VANCOMYCIN HYDROCHLORIDE
     Indication: POST PROCEDURAL INFECTION
     Dosage: 1250 MG Q12H IV (DL PICC)
     Route: 042
     Dates: start: 20160210, end: 20160213

REACTIONS (4)
  - Urticaria [None]
  - Peripheral swelling [None]
  - Rash [None]
  - Vomiting [None]

NARRATIVE: CASE EVENT DATE: 20160212
